FAERS Safety Report 6122186-3 (Version None)
Quarter: 2009Q1

REPORT INFORMATION
  Report Type: 
  Country: None (occurrence: None)
  Receive Date: 20090316
  Receipt Date: 20090316
  Transmission Date: 20090719
  Serious: Yes (Other)
  Sender: FDA-Public Use
  Company Number: None

PATIENT
  Age: 30 Year
  Sex: Female
  Weight: 56.6996 kg

DRUGS (1)
  1. DOXYCYCLINE HYCLATE [Suspect]
     Indication: VAGINITIS BACTERIAL
     Dosage: 100 MG 2 TIMES A DAY PO
     Route: 048
     Dates: start: 20090311, end: 20090313

REACTIONS (15)
  - ABDOMINAL DISTENSION [None]
  - CHILLS [None]
  - CONFUSIONAL STATE [None]
  - CONSTIPATION [None]
  - DISORIENTATION [None]
  - DYSPEPSIA [None]
  - FEELING ABNORMAL [None]
  - HOT FLUSH [None]
  - IMPAIRED DRIVING ABILITY [None]
  - NAUSEA [None]
  - OEDEMA PERIPHERAL [None]
  - OESOPHAGITIS [None]
  - PANIC REACTION [None]
  - SOMNOLENCE [None]
  - VOMITING [None]
